FAERS Safety Report 15539839 (Version 1)
Quarter: 2018Q4

REPORT INFORMATION
  Report Type: Spontaneous
  Country: PT (occurrence: PT)
  Receive Date: 20181023
  Receipt Date: 20181023
  Transmission Date: 20190205
  Serious: Yes (Death)
  Sender: FDA-Public Use
  Company Number: PT-TEVA-2018-PT-967574

PATIENT
  Age: 52 Year
  Sex: Female
  Weight: 95 kg

DRUGS (10)
  1. DEXAMETHASONE. [Concomitant]
     Active Substance: DEXAMETHASONE
     Route: 065
  2. PARACETAMOL [Concomitant]
     Active Substance: ACETAMINOPHEN
     Route: 065
  3. LOPERAMIDE [Concomitant]
     Active Substance: LOPERAMIDE
     Route: 065
  4. DOCETAXEL. [Suspect]
     Active Substance: DOCETAXEL
     Indication: BREAST CANCER METASTATIC
     Route: 042
     Dates: start: 20180905, end: 20180905
  5. ZOLEDRONIC ACID [Concomitant]
     Active Substance: ZOLEDRONIC ACID
     Route: 065
  6. METOCLOPRAMIDE. [Concomitant]
     Active Substance: METOCLOPRAMIDE
     Route: 065
  7. PREDNISOLONE. [Concomitant]
     Active Substance: PREDNISOLONE
     Route: 065
  8. GRANISETRON [Concomitant]
     Active Substance: GRANISETRON
     Route: 065
  9. IBUPROFEN. [Concomitant]
     Active Substance: IBUPROFEN
     Route: 065
  10. CODEINE [Concomitant]
     Active Substance: CODEINE
     Route: 065

REACTIONS (1)
  - Febrile neutropenia [Fatal]

NARRATIVE: CASE EVENT DATE: 20180912
